FAERS Safety Report 6681322-0 (Version None)
Quarter: 2010Q2

REPORT INFORMATION
  Report Type: 
  Country: None (occurrence: None)
  Receive Date: 20100414
  Receipt Date: 20100409
  Transmission Date: 20101027
  Serious: Yes (Hospitalization)
  Sender: FDA-Public Use
  Company Number: A0756260A

PATIENT
  Age: 59 Year
  Sex: Male
  Weight: 114.1 kg

DRUGS (6)
  1. AVANDIA [Suspect]
     Dosage: 4MG PER DAY
     Route: 048
     Dates: start: 20040501, end: 20071201
  2. ROSIGLITAZONE MALEATE [Suspect]
     Route: 048
     Dates: start: 20040401, end: 20080301
  3. WELLBUTRIN [Concomitant]
  4. CRESTOR [Concomitant]
  5. GLUCOPHAGE [Concomitant]
  6. INSULIN NOVOLIN [Concomitant]

REACTIONS (3)
  - CORONARY ARTERY DISEASE [None]
  - MYOCARDIAL INFARCTION [None]
  - MYOCARDIAL ISCHAEMIA [None]
